FAERS Safety Report 16606936 (Version 1)
Quarter: 2019Q3

REPORT INFORMATION
  Report Type: Spontaneous
  Country: FR (occurrence: FR)
  Receive Date: 20190722
  Receipt Date: 20190722
  Transmission Date: 20191004
  Serious: Yes (Hospitalization)
  Sender: FDA-Public Use
  Company Number: FR-ZYDUS-038650

PATIENT
  Age: 92 Year
  Sex: Female

DRUGS (14)
  1. ADENURIC [Suspect]
     Active Substance: FEBUXOSTAT
     Indication: GOUT
     Dosage: UNKNOWN
     Route: 048
     Dates: start: 20190411, end: 20190415
  2. CETIRIZINE [Suspect]
     Active Substance: CETIRIZINE HYDROCHLORIDE
     Indication: HYPERSENSITIVITY
     Route: 048
  3. BISOPROLOL [Suspect]
     Active Substance: BISOPROLOL
     Indication: ACUTE CORONARY SYNDROME
     Route: 048
     Dates: start: 2016
  4. ZYMA [Concomitant]
     Active Substance: PROBIOTICS NOS
     Indication: PRODUCT USED FOR UNKNOWN INDICATION
  5. ABASAGLAR [Concomitant]
     Active Substance: INSULIN GLARGINE
     Indication: PRODUCT USED FOR UNKNOWN INDICATION
  6. AMIODARONE [Suspect]
     Active Substance: AMIODARONE
     Indication: ATRIAL FIBRILLATION
     Route: 048
     Dates: start: 201808, end: 20190318
  7. ZOPICLONE [Suspect]
     Active Substance: ZOPICLONE
     Indication: SLEEP DISORDER THERAPY
     Route: 048
  8. DIPROSONE [Concomitant]
     Active Substance: BETAMETHASONE DIPROPIONATE
     Indication: PRODUCT USED FOR UNKNOWN INDICATION
  9. FUROSEMIDE. [Suspect]
     Active Substance: FUROSEMIDE
     Indication: CARDIAC FAILURE
     Dosage: UNKNOWN
     Route: 048
     Dates: start: 201008
  10. SPIRONOLACTONE. [Suspect]
     Active Substance: SPIRONOLACTONE
     Indication: ACUTE CORONARY SYNDROME
     Dosage: UNKNOWN
     Route: 048
     Dates: start: 201901, end: 20190326
  11. LERCANIDIPINE [Suspect]
     Active Substance: LERCANIDIPINE
     Indication: ACUTE CORONARY SYNDROME
     Route: 048
     Dates: start: 2016
  12. NOVORAPID [Concomitant]
     Active Substance: INSULIN ASPART
     Indication: PRODUCT USED FOR UNKNOWN INDICATION
  13. SPAGLUMIC ACID [Concomitant]
     Active Substance: SPAGLUMIC ACID
     Indication: PRODUCT USED FOR UNKNOWN INDICATION
  14. ALLOPURINOL. [Suspect]
     Active Substance: ALLOPURINOL
     Indication: GOUT
     Dosage: UNKNOWN
     Route: 048
     Dates: start: 20190408, end: 20190411

REACTIONS (1)
  - Photosensitivity reaction [Recovering/Resolving]

NARRATIVE: CASE EVENT DATE: 20190503
